FAERS Safety Report 7778753-4 (Version None)
Quarter: 2011Q3

REPORT INFORMATION
  Report Type: 
  Country: None (occurrence: None)
  Receive Date: 20110926
  Receipt Date: 20110915
  Transmission Date: 20111222
  Serious: Yes (Hospitalization, Other)
  Sender: FDA-Public Use
  Company Number: US-BAYER-2011-020904

PATIENT
  Age: 44 Year
  Sex: Female
  Weight: 99.32 kg

DRUGS (14)
  1. DROSPIRENONE AND ETHINYL ESTRADIOL [Suspect]
     Indication: CONTRACEPTION
     Dosage: UNK
     Dates: start: 20080201, end: 20080301
  2. GLIMEPIRIDE [Concomitant]
     Dosage: UNK UNK, QD
     Route: 048
  3. DROSPIRENONE AND ETHINYL ESTRADIOL [Suspect]
     Dosage: UNK
     Dates: start: 20090205, end: 20090301
  4. GLUCOPHAGE [Concomitant]
     Dosage: 500 MG, QD
  5. AMARYL [Concomitant]
     Dosage: 4 MG, QD
  6. LOPRESSOR [Concomitant]
     Dosage: 100 MG, BID
  7. METOPROLOL TARTRATE [Concomitant]
     Dosage: UNK
     Dates: start: 20050101
  8. ADVAIR DISKUS 100/50 [Concomitant]
     Dosage: UNK
     Dates: start: 20020101
  9. DIOVAN [Concomitant]
     Dosage: 320 MG, QD
  10. ALBUTEROL [Concomitant]
     Dosage: UNK UNK, PRN
     Dates: start: 20020101
  11. FISH OIL [Concomitant]
     Dosage: UNK UNK, QD
     Route: 048
  12. METFORMIN HCL [Concomitant]
     Dosage: UNK
     Dates: start: 20080101
  13. TRIAMTERENE AND HYDROCHLOROTHIAZIDE [Concomitant]
     Dosage: UNK
     Dates: start: 20060101
  14. DIOVAN [Concomitant]
     Dosage: UNK UNK, QD
     Route: 048
     Dates: start: 20060101, end: 20090101

REACTIONS (7)
  - DEEP VEIN THROMBOSIS [None]
  - PAIN [None]
  - EMOTIONAL DISTRESS [None]
  - ANXIETY [None]
  - PAIN IN EXTREMITY [None]
  - THROMBOSIS [None]
  - OEDEMA PERIPHERAL [None]
